FAERS Safety Report 25548398 (Version 2)
Quarter: 2025Q3

REPORT INFORMATION
  Report Type: Spontaneous
  Country: EU (occurrence: EU)
  Receive Date: 20250714
  Receipt Date: 20250729
  Transmission Date: 20251020
  Serious: No
  Sender: BridgeBio Pharma
  Company Number: EU-BAYER-2025A083105

PATIENT
  Age: 89 Year
  Sex: Male
  Weight: 71 kg

DRUGS (8)
  1. ACORAMIDIS [Suspect]
     Active Substance: ACORAMIDIS
     Dosage: 2 DF, BID
     Dates: start: 20250403
  2. TORSEMIDE [Concomitant]
     Active Substance: TORSEMIDE
  3. PREGABALIN [Concomitant]
     Active Substance: PREGABALIN
  4. ATORVASTATIN [Concomitant]
     Active Substance: ATORVASTATIN
  5. BISOPROLOL [Concomitant]
     Active Substance: BISOPROLOL
  6. JARDIANCE [Concomitant]
     Active Substance: EMPAGLIFLOZIN
  7. PANTOPRAZOLE SODIUM [Concomitant]
     Active Substance: PANTOPRAZOLE SODIUM
  8. EPLERENONE [Concomitant]
     Active Substance: EPLERENONE

REACTIONS (5)
  - Decreased appetite [Not Recovered/Not Resolved]
  - Weight fluctuation [Unknown]
  - Asthenia [Not Recovered/Not Resolved]
  - Underweight [Recovering/Resolving]
  - Abdominal discomfort [Unknown]

NARRATIVE: CASE EVENT DATE: 20250401
